FAERS Safety Report 7501455-6 (Version None)
Quarter: 2011Q2

REPORT INFORMATION
  Report Type: 
  Country: None (occurrence: None)
  Receive Date: 20110524
  Receipt Date: 20110513
  Transmission Date: 20111010
  Serious: Yes (Life-Threatening, Hospitalization)
  Sender: FDA-Public Use
  Company Number: BE-UCBSA-029496

PATIENT
  Sex: Male
  Weight: 75 kg

DRUGS (2)
  1. LACOSAMIDE [Suspect]
     Indication: PARTIAL SEIZURES WITH SECONDARY GENERALISATION
     Dates: start: 20110124, end: 20110407
  2. LEVETIRACETAM [Suspect]

REACTIONS (2)
  - LOSS OF CONSCIOUSNESS [None]
  - FALL [None]
